FAERS Safety Report 26121913 (Version 1)
Quarter: 2025Q4

REPORT INFORMATION
  Report Type: Report from Study
  Country: PK (occurrence: PK)
  Receive Date: 20251204
  Receipt Date: 20251204
  Transmission Date: 20260118
  Serious: Yes (Hospitalization, Other)
  Sender: NOVARTIS
  Company Number: PK-002147023-PHHY2015PK093049

PATIENT
  Age: 38 Year
  Sex: Female
  Weight: 69 kg

DRUGS (3)
  1. RUXOLITINIB [Suspect]
     Active Substance: RUXOLITINIB
     Indication: Myelofibrosis
     Dosage: 7.5 MG, BID
     Route: 048
     Dates: end: 20150603
  2. RUXOLITINIB [Suspect]
     Active Substance: RUXOLITINIB
     Dosage: 7.5 MG, BID
     Route: 048
     Dates: start: 20150718, end: 20150726
  3. NEORAL [Suspect]
     Active Substance: CYCLOSPORINE
     Indication: Immunosuppression
     Dosage: 150 MG, BID
     Route: 048
     Dates: start: 20150602, end: 20150722

REACTIONS (6)
  - Swelling face [Recovering/Resolving]
  - Vomiting [Recovering/Resolving]
  - Acute leukaemia [Recovering/Resolving]
  - Blood urea increased [Recovering/Resolving]
  - Platelet count decreased [Recovering/Resolving]
  - Blood creatinine increased [Recovering/Resolving]

NARRATIVE: CASE EVENT DATE: 20150722
